FAERS Safety Report 20691274 (Version 1)
Quarter: 2022Q2

REPORT INFORMATION
  Report Type: Spontaneous
  Country: PT (occurrence: PT)
  Receive Date: 20220408
  Receipt Date: 20220408
  Transmission Date: 20220721
  Serious: Yes (Other)
  Sender: FDA-Public Use
  Company Number: ES-MEITHEAL-2022MPLIT00034

PATIENT
  Age: 52 Year
  Sex: Female

DRUGS (3)
  1. MYCOPHENOLATE MOFETIL [Suspect]
     Active Substance: MYCOPHENOLATE MOFETIL
     Indication: Systemic lupus erythematosus
     Dosage: FOR MORE THAN 10 YEARS DUE TO CUTANEOUS, RENAL AND JOINT  INVOLVEMENT
     Route: 065
  2. PREDNISOLONE [Suspect]
     Active Substance: PREDNISOLONE
     Indication: Systemic lupus erythematosus
     Dosage: FOR MORE THAN 10 YEARS DUE TO CUTANEOUS, RENAL AND JOINT  INVOLVEMENT
     Route: 065
  3. HYDROXYCHLOROQUINE [Suspect]
     Active Substance: HYDROXYCHLOROQUINE
     Indication: Systemic lupus erythematosus
     Dosage: FOR MORE THAN 10 YEARS DUE TO CUTANEOUS, RENAL AND JOINT  INVOLVEMENT
     Route: 065

REACTIONS (1)
  - Mucocutaneous leishmaniasis [Recovered/Resolved]
